FAERS Safety Report 24684556 (Version 1)
Quarter: 2024Q4

REPORT INFORMATION
  Report Type: Spontaneous
  Country: US (occurrence: US)
  Receive Date: 20241202
  Receipt Date: 20241202
  Transmission Date: 20250115
  Serious: No
  Sender: BRISTOL-MYERS SQUIBB COMPANY
  Company Number: US-BRISTOL-MYERS SQUIBB COMPANY-2024-183107

PATIENT
  Age: 73 Year
  Sex: Male
  Weight: 92 kg

DRUGS (3)
  1. ELIQUIS [Suspect]
     Active Substance: APIXABAN
     Indication: Deep vein thrombosis
     Route: 048
     Dates: start: 20241113
  2. TYLENOL [Concomitant]
     Active Substance: ACETAMINOPHEN
     Indication: Product used for unknown indication
  3. OXYCODONE [Concomitant]
     Active Substance: OXYCODONE
     Indication: Product used for unknown indication

REACTIONS (5)
  - Dermatitis acneiform [Unknown]
  - Pruritus [Unknown]
  - Back pain [Unknown]
  - Pustule [Unknown]
  - Procedural pain [Unknown]

NARRATIVE: CASE EVENT DATE: 20241114
